FAERS Safety Report 19739747 (Version 1)
Quarter: 2021Q3

REPORT INFORMATION
  Report Type: Report from Study
  Country: BR (occurrence: BR)
  Receive Date: 20210823
  Receipt Date: 20210823
  Transmission Date: 20211014
  Serious: Yes (Other)
  Sender: FDA-Public Use
  Company Number: PHHY2018BR189667

PATIENT
  Age: 54 Year
  Sex: Male
  Weight: 72 kg

DRUGS (7)
  1. COSENTYX [Suspect]
     Active Substance: SECUKINUMAB
     Indication: ANKYLOSING SPONDYLITIS
     Dosage: 150 MG, QMO
     Route: 058
     Dates: start: 20180803
  2. COSENTYX [Suspect]
     Active Substance: SECUKINUMAB
     Dosage: UNK
     Route: 058
     Dates: start: 20190618
  3. COSENTYX [Suspect]
     Active Substance: SECUKINUMAB
     Dosage: 150 MG
     Route: 065
     Dates: start: 20180824
  4. COSENTYX [Suspect]
     Active Substance: SECUKINUMAB
     Dosage: UNK UNK, UNKNOWN
     Route: 065
     Dates: start: 202107
  5. COSENTYX [Suspect]
     Active Substance: SECUKINUMAB
     Dosage: 150 UNK
     Route: 065
     Dates: start: 20180824
  6. COSENTYX [Suspect]
     Active Substance: SECUKINUMAB
     Dosage: UNK
     Route: 065
     Dates: start: 20190910
  7. COSENTYX [Suspect]
     Active Substance: SECUKINUMAB
     Dosage: UNK
     Route: 065
     Dates: start: 20210110

REACTIONS (13)
  - Weight increased [Not Recovered/Not Resolved]
  - Fatigue [Unknown]
  - General physical health deterioration [Unknown]
  - Rhinorrhoea [Unknown]
  - Movement disorder [Unknown]
  - Tendon rupture [Unknown]
  - Pneumonia [Unknown]
  - Insomnia [Unknown]
  - Back pain [Recovering/Resolving]
  - Accident [Unknown]
  - Decreased immune responsiveness [Unknown]
  - Pain [Not Recovered/Not Resolved]
  - Nasopharyngitis [Unknown]

NARRATIVE: CASE EVENT DATE: 20190720
